FAERS Safety Report 12992893 (Version 1)
Quarter: 2016Q4

REPORT INFORMATION
  Report Type: Other
  Country: JP (occurrence: JP)
  Receive Date: 20161202
  Receipt Date: 20161202
  Transmission Date: 20170207
  Serious: Yes (Hospitalization, Other)
  Sender: FDA-Public Use
  Company Number: JP-ORCHID HEALTHCARE-1060316

PATIENT
  Age: 27 Year
  Sex: Female

DRUGS (1)
  1. OLANZAPINE. [Suspect]
     Active Substance: OLANZAPINE
     Indication: PANIC DISORDER
     Route: 065

REACTIONS (4)
  - Encephalopathy [Recovered/Resolved]
  - Hyperosmolar hyperglycaemic state [Recovered/Resolved]
  - Neuroleptic malignant syndrome [Recovered/Resolved]
  - Encephalitis [Recovered/Resolved]
